FAERS Safety Report 15330647 (Version 1)
Quarter: 2018Q3

REPORT INFORMATION
  Report Type: Spontaneous
  Country: GR (occurrence: GR)
  Receive Date: 20180829
  Receipt Date: 20180829
  Transmission Date: 20181010
  Serious: Yes (Life-Threatening)
  Sender: FDA-Public Use
  Company Number: GR-MYLANLABS-2018M1063540

PATIENT
  Age: 73 Year
  Sex: Female

DRUGS (3)
  1. SOMATOSTATIN [Suspect]
     Active Substance: SOMATOSTATIN
     Indication: INSULINOMA
     Dosage: UNK UNK, CYCLE
  2. CAPECITABINE MYLAN [Suspect]
     Active Substance: CAPECITABINE
     Indication: INSULINOMA
     Dosage: UNK UNK, CYCLE
  3. TEMOZOLOMIDE. [Suspect]
     Active Substance: TEMOZOLOMIDE
     Indication: INSULINOMA
     Dosage: UNK UNK, CYCLE

REACTIONS (1)
  - Drug ineffective [Recovering/Resolving]
